FAERS Safety Report 8202661-8 (Version None)
Quarter: 2012Q1

REPORT INFORMATION
  Report Type: 
  Country: None (occurrence: None)
  Receive Date: 20120312
  Receipt Date: 20120305
  Transmission Date: 20120608
  Serious: Yes (Other)
  Sender: FDA-Public Use
  Company Number: PHHY2012AU019436

PATIENT
  Age: 46 Year
  Sex: Male

DRUGS (2)
  1. PAROXETINE [Suspect]
     Indication: EMOTIONAL DISTRESS
     Dosage: 20 MG, QD
  2. PAROXETINE [Suspect]
     Dosage: 60 MG, QD

REACTIONS (8)
  - DELIRIUM [None]
  - MANIA [None]
  - SUICIDAL IDEATION [None]
  - HOMICIDE [None]
  - AKATHISIA [None]
  - MENTAL IMPAIRMENT [None]
  - ANOSOGNOSIA [None]
  - DRUG INEFFECTIVE [None]
